FAERS Safety Report 20744136 (Version 3)
Quarter: 2022Q2

REPORT INFORMATION
  Report Type: Spontaneous
  Country: IL (occurrence: IL)
  Receive Date: 20220425
  Receipt Date: 20220513
  Transmission Date: 20220721
  Serious: Yes (Hospitalization, Other)
  Sender: FDA-Public Use
  Company Number: IL-SA-SAC20220422000930

PATIENT
  Age: 49 Year
  Sex: Female

DRUGS (9)
  1. LEMTRADA [Suspect]
     Active Substance: ALEMTUZUMAB
     Indication: Multiple sclerosis
     Dosage: UNK
     Route: 065
     Dates: start: 202002, end: 2020
  2. LEMTRADA [Suspect]
     Active Substance: ALEMTUZUMAB
     Dosage: UNK
     Route: 065
     Dates: start: 201903, end: 2019
  3. COVID-19 VACCINE [Concomitant]
     Indication: Immunisation
     Dosage: UNK
     Route: 042
  4. COVID-19 VACCINE [Concomitant]
     Dosage: UNK
     Route: 042
  5. COVID-19 VACCINE [Concomitant]
     Dosage: UNK
     Route: 042
  6. PLAQUENIL [Concomitant]
     Active Substance: HYDROXYCHLOROQUINE SULFATE
     Dosage: UNK
     Route: 065
  7. PREVENAR [Concomitant]
     Active Substance: PNEUMOCOCCAL 7-VALENT CONJUGATE VACCINE (DIPHTHERIA CRM197 PROTEIN)
     Indication: Immunisation
     Dosage: UNK
     Route: 065
  8. PNEUMOVAX 23 [Concomitant]
     Active Substance: PNEUMOCOCCAL VACCINE, POLYVALENT 23
     Indication: Immunisation
     Dosage: UNK
     Route: 065
  9. NEISSERIA MENINGITIDIS [Concomitant]
     Active Substance: NEISSERIA MENINGITIDIS
     Indication: Immunisation
     Dosage: UNK
     Route: 065

REACTIONS (9)
  - Haemolytic anaemia [Unknown]
  - Coombs positive haemolytic anaemia [Unknown]
  - Systemic lupus erythematosus [Unknown]
  - Haemolysis [Unknown]
  - Antinuclear antibody increased [Unknown]
  - Arthralgia [Unknown]
  - Alopecia [Unknown]
  - Splenomegaly [Unknown]
  - Haemoglobin decreased [Unknown]

NARRATIVE: CASE EVENT DATE: 20200101
